FAERS Safety Report 11544982 (Version 2)
Quarter: 2015Q3

REPORT INFORMATION
  Report Type: Spontaneous
  Country: VN (occurrence: VN)
  Receive Date: 20150924
  Receipt Date: 20150925
  Transmission Date: 20151125
  Serious: Yes (Life-Threatening)
  Sender: FDA-Public Use
  Company Number: VN-SA-2015SA143996

PATIENT
  Age: 4 Year
  Sex: Male
  Weight: 12 kg

DRUGS (8)
  1. GENTAMICIN. [Concomitant]
     Active Substance: GENTAMICIN
     Dosage: 80 MG
     Route: 048
     Dates: start: 20150914
  2. CLAFORAN [Suspect]
     Active Substance: CEFOTAXIME SODIUM
     Indication: GASTROINTESTINAL INFECTION
     Route: 042
     Dates: start: 20150914, end: 20150914
  3. DEXTROSE NATRI [Concomitant]
     Dosage: INTRAVENOUS INFUSION
     Dates: start: 20150912
  4. ORS [Concomitant]
     Route: 048
     Dates: start: 20150913
  5. EFFERALGAN [Concomitant]
     Active Substance: ACETAMINOPHEN
     Route: 048
     Dates: start: 20150912
  6. LACBIO [Concomitant]
     Route: 048
     Dates: start: 20150914
  7. AUGBIDIL [Concomitant]
     Route: 048
     Dates: start: 20150913
  8. ACEKID [Concomitant]
     Route: 048
     Dates: start: 20150912

REACTIONS (5)
  - Pallor [Recovered/Resolved]
  - Radial pulse decreased [Recovered/Resolved]
  - Body temperature decreased [Recovered/Resolved]
  - Dermatitis allergic [Recovered/Resolved]
  - Hypertonia [Recovered/Resolved]

NARRATIVE: CASE EVENT DATE: 20150914
